FAERS Safety Report 5132694-X (Version None)
Quarter: 2006Q4

REPORT INFORMATION
  Report Type: 
  Country: None (occurrence: None)
  Receive Date: 20061017
  Receipt Date: 20060925
  Transmission Date: 20070319
  Serious: Yes (Life-Threatening, Hospitalization)
  Sender: FDA-Public Use
  Company Number: 2006BH011783

PATIENT
  Age: 9 Year
  Sex: Female
  Weight: 17.3 kg

DRUGS (1)
  1. DIANEAL [Suspect]
     Indication: RENAL FAILURE CHRONIC
     Dosage: 800 ML; EVERY DAY; IP
     Dates: start: 19891126, end: 19990901

REACTIONS (3)
  - PERITONEAL DIALYSIS [None]
  - RENAL TRANSPLANT [None]
  - SCLEROSING ENCAPSULATING PERITONITIS [None]
